FAERS Safety Report 9701102 (Version 3)
Quarter: 2014Q1

REPORT INFORMATION
  Report Type: Spontaneous
  Country: FR (occurrence: FR)
  Receive Date: 20131121
  Receipt Date: 20140218
  Transmission Date: 20141002
  Serious: Yes (Other)
  Sender: FDA-Public Use
  Company Number: FR-JNJFOC-20131109870

PATIENT
  Age: 23 Year
  Sex: Female
  Weight: 45 kg

DRUGS (6)
  1. REMICADE [Suspect]
     Indication: ENTEROCOLITIS HAEMORRHAGIC
     Route: 042
     Dates: start: 20131114
  2. REMICADE [Suspect]
     Indication: ENTEROCOLITIS HAEMORRHAGIC
     Route: 042
  3. REMICADE [Suspect]
     Indication: ENTEROCOLITIS HAEMORRHAGIC
     Route: 042
     Dates: start: 20131014
  4. REMICADE [Suspect]
     Indication: ENTEROCOLITIS HAEMORRHAGIC
     Dosage: 6 WEEKS BEFORE FROM 14-OCT-2013
     Route: 042
     Dates: start: 2013
  5. DEXCHLORPHENIRAMINE [Suspect]
     Indication: PREMEDICATION
     Route: 042
     Dates: start: 20131014
  6. DEXCHLORPHENIRAMINE [Suspect]
     Indication: PREMEDICATION
     Route: 042
     Dates: start: 20131114

REACTIONS (6)
  - Hyperhidrosis [Recovered/Resolved]
  - Erythema [Recovered/Resolved]
  - Nausea [Recovered/Resolved]
  - Vomiting [Recovered/Resolved]
  - Infusion related reaction [Recovered/Resolved]
  - Presyncope [Recovered/Resolved]
